FAERS Safety Report 5208990-4 (Version None)
Quarter: 2007Q1

REPORT INFORMATION
  Report Type: 
  Country: None (occurrence: None)
  Receive Date: 20070116
  Receipt Date: 20070108
  Transmission Date: 20070707
  Serious: Yes (Hospitalization)
  Sender: FDA-Public Use
  Company Number: FR-GLAXOSMITHKLINE-B0453902A

PATIENT
  Age: 51 Year
  Sex: Female

DRUGS (8)
  1. ARIXTRA [Suspect]
     Indication: DRUG USE FOR UNKNOWN INDICATION
     Route: 058
     Dates: end: 20060919
  2. PREVISCAN [Suspect]
     Dosage: 20MG PER DAY
     Route: 048
     Dates: start: 20060720, end: 20060919
  3. ZELITREX [Concomitant]
     Dosage: 1000MG PER DAY
     Route: 048
  4. ALDALIX [Concomitant]
     Dosage: 1UNIT PER DAY
     Route: 048
  5. ARANESP [Concomitant]
     Dosage: 1UNIT WEEKLY
     Dates: start: 20060905
  6. DIFFU K [Concomitant]
     Dosage: 2UNIT PER DAY
     Route: 048
  7. DOXORUBICIN HCL [Concomitant]
     Indication: BREAST CANCER
  8. TAXOL [Concomitant]
     Indication: BREAST CANCER

REACTIONS (7)
  - ACCIDENTAL OVERDOSE [None]
  - ACTIVATED PARTIAL THROMBOPLASTIN TIME PROLONGED [None]
  - ANAEMIA [None]
  - GINGIVAL BLEEDING [None]
  - HAEMATURIA [None]
  - INTERNATIONAL NORMALISED RATIO INCREASED [None]
  - METRORRHAGIA [None]
